FAERS Safety Report 24664408 (Version 3)
Quarter: 2025Q1

REPORT INFORMATION
  Report Type: Spontaneous
  Country: US (occurrence: US)
  Receive Date: 20241126
  Receipt Date: 20250103
  Transmission Date: 20250409
  Serious: Yes (Hospitalization)
  Sender: ROCHE
  Company Number: US-ROCHE-10000139190

PATIENT
  Age: 62 Year
  Sex: Male

DRUGS (24)
  1. XOLAIR [Suspect]
     Active Substance: OMALIZUMAB
     Indication: Asthma
     Dosage: STRENGTH, DOSE 75 MG/ML,
     Route: 058
     Dates: start: 20240619, end: 20241102
  2. XOLAIR [Suspect]
     Active Substance: OMALIZUMAB
     Route: 058
  3. ALBUTEROL [Concomitant]
     Active Substance: ALBUTEROL
  4. ATORVASTATIN [Concomitant]
     Active Substance: ATORVASTATIN
  5. BIKTARVY [Concomitant]
     Active Substance: BICTEGRAVIR SODIUM\EMTRICITABINE\TENOFOVIR ALAFENAMIDE FUMARATE
  6. CARVEDILOL [Concomitant]
     Active Substance: CARVEDILOL
  7. DESVENLAFAXINE [Concomitant]
     Active Substance: DESVENLAFAXINE
  8. DIPHENOXYLATE [Concomitant]
     Active Substance: DIPHENOXYLATE
  9. ELIQUIS [Concomitant]
     Active Substance: APIXABAN
  10. FAMOTIDINE [Concomitant]
     Active Substance: FAMOTIDINE
  11. FLUTICASONE [Concomitant]
     Active Substance: FLUTICASONE
  12. FUROSEMIDE [Concomitant]
     Active Substance: FUROSEMIDE
  13. IRBESARTAN [Concomitant]
     Active Substance: IRBESARTAN
  14. LEVOTHYROXINE [Concomitant]
     Active Substance: LEVOTHYROXINE
  15. LORAZEPAM [Concomitant]
     Active Substance: LORAZEPAM
  16. NICOTINE [Concomitant]
     Active Substance: NICOTINE
  17. OXYCODONE [Concomitant]
     Active Substance: OXYCODONE
  18. PREDNISONE [Concomitant]
     Active Substance: PREDNISONE
  19. PROMETHAZINE [Concomitant]
     Active Substance: PROMETHAZINE HYDROCHLORIDE
  20. QVAR 80MCG REDIHALER AER [Concomitant]
  21. STIOLTO RESP IMAT 2.5/2.5MCG INH 4GM [Concomitant]
  22. OMEPRAZOLE [Concomitant]
     Active Substance: OMEPRAZOLE
  23. IBUPROFEN [Concomitant]
     Active Substance: IBUPROFEN
  24. BIKTARVY [Concomitant]
     Active Substance: BICTEGRAVIR SODIUM\EMTRICITABINE\TENOFOVIR ALAFENAMIDE FUMARATE

REACTIONS (3)
  - Chronic obstructive pulmonary disease [Unknown]
  - Asthma [Unknown]
  - Cardiac failure congestive [Unknown]

NARRATIVE: CASE EVENT DATE: 20241102
